FAERS Safety Report 4308577-1 (Version None)
Quarter: 2004Q1

REPORT INFORMATION
  Report Type: 
  Country: None (occurrence: None)
  Receive Date: 20040301
  Receipt Date: 20040223
  Transmission Date: 20041129
  Serious: Yes (Other)
  Sender: FDA-Public Use
  Company Number: WAES 0402USA01920

PATIENT
  Age: 73 Year
  Sex: Male

DRUGS (7)
  1. AMLODIPINE BESYLATE [Concomitant]
  2. COZAAR [Suspect]
     Route: 048
     Dates: start: 20031210, end: 20040218
  3. MAGNESIUM OXIDE [Concomitant]
  4. MECOBALAMIN [Concomitant]
  5. RANITIDINE HYDROCHLORIDE [Concomitant]
  6. SENNOSIDES [Concomitant]
  7. SERRAPEPTASE [Concomitant]

REACTIONS (1)
  - PANCYTOPENIA [None]
